FAERS Safety Report 12939719 (Version 1)
Quarter: 2016Q4

REPORT INFORMATION
  Report Type: Spontaneous
  Country: FR (occurrence: FR)
  Receive Date: 20161114
  Receipt Date: 20161114
  Transmission Date: 20170207
  Serious: Yes (Hospitalization)
  Sender: FDA-Public Use
  Company Number: FR-SA-2016SA206495

PATIENT
  Age: 85 Year
  Sex: Female

DRUGS (11)
  1. FUROSEMIDE. [Interacting]
     Active Substance: FUROSEMIDE
     Route: 048
  2. ALPRAZOLAM. [Suspect]
     Active Substance: ALPRAZOLAM
     Indication: INSOMNIA
     Route: 048
     Dates: end: 20160919
  3. PREDNISOLONE. [Interacting]
     Active Substance: PREDNISOLONE
     Route: 048
  4. ATARAX [Suspect]
     Active Substance: HYDROXYZINE\HYDROXYZINE HYDROCHLORIDE
     Indication: INSOMNIA
     Route: 048
     Dates: end: 20160919
  5. ZOLPIDEM [Suspect]
     Active Substance: ZOLPIDEM\ZOLPIDEM TARTRATE
     Indication: INSOMNIA
     Route: 048
     Dates: end: 20160919
  6. MACROGOL [Suspect]
     Active Substance: POLYETHYLENE GLYCOLS
     Indication: CONSTIPATION
     Route: 048
  7. LANTUS [Suspect]
     Active Substance: INSULIN GLARGINE
     Indication: DIABETES MELLITUS
     Dosage: DAILY DOSE: ACCORDING TO PROTOCOL
     Route: 058
  8. PARACETAMOL CODEINE [Suspect]
     Active Substance: ACETAMINOPHEN\CODEINE PHOSPHATE
     Indication: CONSTIPATION
     Dosage: 2-2-2
     Route: 048
  9. OXYCONTIN [Suspect]
     Active Substance: OXYCODONE HYDROCHLORIDE
     Indication: PAIN
     Dosage: 10 MG, PROLONGED RELEASE FILM COATED TABLET
     Route: 048
  10. NEBIVOLOL. [Interacting]
     Active Substance: NEBIVOLOL
     Indication: GASTROOESOPHAGEAL REFLUX DISEASE
     Route: 048
  11. LANSOPRAZOLE. [Suspect]
     Active Substance: LANSOPRAZOLE
     Indication: GASTROOESOPHAGEAL REFLUX DISEASE
     Route: 048

REACTIONS (1)
  - Fall [Recovered/Resolved]

NARRATIVE: CASE EVENT DATE: 20160919
